FAERS Safety Report 7606911-8 (Version None)
Quarter: 2011Q3

REPORT INFORMATION
  Report Type: 
  Country: None (occurrence: None)
  Receive Date: 20110713
  Receipt Date: 20110706
  Transmission Date: 20111222
  Serious: Yes (Other)
  Sender: FDA-Public Use
  Company Number: DE-BRISTOL-MYERS SQUIBB COMPANY-15783780

PATIENT
  Age: 73 Year
  Sex: Male

DRUGS (2)
  1. METFORMIN HCL [Suspect]
     Dosage: 1 DOSAGE FORM:850 UINTS NOT SPECIFIED
  2. ONGLYZA [Suspect]
     Indication: DIABETES MELLITUS
     Dosage: RECEIVED 2 INTAKE , 1DF = 5 UNIT NOT SPECIFIED
     Route: 048
     Dates: start: 20110524, end: 20110526

REACTIONS (2)
  - PARAESTHESIA [None]
  - CEREBRAL ISCHAEMIA [None]
